FAERS Safety Report 4567959-3 (Version None)
Quarter: 2005Q1

REPORT INFORMATION
  Report Type: 
  Country: None (occurrence: None)
  Receive Date: 20050131
  Receipt Date: 20050114
  Transmission Date: 20050727
  Serious: Yes (Other)
  Sender: FDA-Public Use
  Company Number: CHNY2005AU00461

PATIENT
  Age: 73 Year
  Sex: Male

DRUGS (5)
  1. NICOTINE [Suspect]
     Indication: SMOKING CESSATION THERAPY
     Dosage: 21 MG, ONCE/SINGLE, TRANSDERMAL
     Route: 062
     Dates: start: 20050101, end: 20050102
  2. SOMAC (PANTOPRAZOLE SODIUM) [Concomitant]
  3. COVERSYL (PERINDOPRIL ERBUMINE) [Concomitant]
  4. PLAVIX [Concomitant]
  5. ZOCOR [Concomitant]

REACTIONS (4)
  - AGEUSIA [None]
  - LIP DISCOLOURATION [None]
  - ORAL MUCOSAL DISCOLOURATION [None]
  - TONGUE BLACK HAIRY [None]
